FAERS Safety Report 17003809 (Version 2)
Quarter: 2019Q4

REPORT INFORMATION
  Report Type: Spontaneous
  Country: DE (occurrence: DE)
  Receive Date: 20191107
  Receipt Date: 20191115
  Transmission Date: 20200122
  Serious: Yes (Other)
  Sender: FDA-Public Use
  Company Number: DE-TEVA-2019-DE-1133241

PATIENT
  Age: 65 Year
  Sex: Female

DRUGS (6)
  1. ACICLO BASIC 200 MG [Concomitant]
     Dosage: 200 MILLIGRAM DAILY; 0.5-0-0 DAILY
  2. NITRO [Concomitant]
     Active Substance: NITROGLYCERIN
  3. PANTOPRAZOL 20 MG [Concomitant]
     Active Substance: PANTOPRAZOLE SODIUM
     Dosage: 20 MILLIGRAM DAILY; 1-0-0 DAILY
  4. ATORVASTATIN 20 MG [Concomitant]
     Active Substance: ATORVASTATIN
     Dosage: 20 MILLIGRAM DAILY; 0-0-1 DAILY
  5. BISOPROLOL 2.5 MG [Suspect]
     Active Substance: BISOPROLOL
     Dosage: 1.25 MILLIGRAM DAILY; 0.625 MG USED 2 TIMES EACH IN THE MORNING AND EVENING, 0.5-0-0.5 DAILY
     Route: 048
  6. ASS 100 [Concomitant]
     Active Substance: ASPIRIN
     Dosage: 100 MILLIGRAM DAILY; 1-0-0 DAILY

REACTIONS (11)
  - Chest discomfort [Unknown]
  - Dyspnoea [Not Recovered/Not Resolved]
  - Asthenia [Not Recovered/Not Resolved]
  - Dizziness [Unknown]
  - Drug intolerance [Not Recovered/Not Resolved]
  - Angina pectoris [Not Recovered/Not Resolved]
  - Bradycardia [Recovered/Resolved]
  - Fatigue [Unknown]
  - General physical health deterioration [Not Recovered/Not Resolved]
  - Hypotension [Unknown]
  - Chest discomfort [Recovered/Resolved]

NARRATIVE: CASE EVENT DATE: 2019
